FAERS Safety Report 7098778-4 (Version None)
Quarter: 2010Q4

REPORT INFORMATION
  Report Type: 
  Country: None (occurrence: None)
  Receive Date: 20101110
  Receipt Date: 20101110
  Transmission Date: 20110411
  Serious: Yes (Hospitalization)
  Sender: FDA-Public Use
  Company Number: None

PATIENT
  Age: 79 Year
  Sex: Male
  Weight: 93 kg

DRUGS (2)
  1. METOPROLOL TARTRATE [Suspect]
     Indication: CARDIOVASCULAR DISORDER
     Dosage: 25 MG BID PO
     Route: 048
     Dates: start: 19990807, end: 20100609
  2. METOPROLOL TARTRATE [Suspect]
     Indication: SURGERY
     Dosage: 25 MG BID PO
     Route: 048
     Dates: start: 19990807, end: 20100609

REACTIONS (1)
  - BRADYCARDIA [None]
